FAERS Safety Report 15103313 (Version 1)
Quarter: 2018Q3

REPORT INFORMATION
  Report Type: Spontaneous
  Country: US (occurrence: US)
  Receive Date: 20180703
  Receipt Date: 20180703
  Transmission Date: 20181010
  Serious: Yes (Death, Other)
  Sender: FDA-Public Use
  Company Number: US-IMPAX LABORATORIES, INC-2018-IPXL-02261

PATIENT
  Age: 88 Year
  Sex: Male

DRUGS (1)
  1. RYTARY [Suspect]
     Active Substance: CARBIDOPA\LEVODOPA
     Indication: PARKINSON^S DISEASE
     Dosage: 61.25/245MG, ONE CAPSULE THREE TIMES A DAY
     Route: 065

REACTIONS (6)
  - Hypotension [Unknown]
  - Dyspepsia [Unknown]
  - Chest pain [Unknown]
  - Drug dose omission [Unknown]
  - Multiple organ dysfunction syndrome [Fatal]
  - Respiratory distress [Unknown]
